FAERS Safety Report 11579866 (Version 1)
Quarter: 2015Q3

REPORT INFORMATION
  Report Type: Spontaneous
  Country: FR (occurrence: FR)
  Receive Date: 20150930
  Receipt Date: 20150930
  Transmission Date: 20151125
  Serious: Yes (Hospitalization)
  Sender: FDA-Public Use
  Company Number: FR-PFIZER INC-2015323136

PATIENT
  Age: 35 Year
  Sex: Female

DRUGS (7)
  1. RITALINE [Suspect]
     Active Substance: METHYLPHENIDATE HYDROCHLORIDE
     Indication: HYPERSOMNIA
     Dosage: 30 MG, 1X/DAY
     Route: 048
     Dates: start: 201004, end: 20150910
  2. PITOLISANT [Suspect]
     Active Substance: PITOLISANT
     Indication: HYPERSOMNIA
     Dosage: UNK
     Route: 048
     Dates: start: 201407, end: 20150910
  3. LYRICA [Suspect]
     Active Substance: PREGABALIN
     Dosage: UNK
     Route: 048
     Dates: start: 201306, end: 20150910
  4. DIANE (CYPROTERONE ACETATE\ETHINYL ESTRADIOL) [Suspect]
     Active Substance: CYPROTERONE ACETATE\ETHINYL ESTRADIOL
     Indication: ORAL CONTRACEPTION
     Dosage: 1 DF, 1X/DAY
     Route: 048
     Dates: end: 20150910
  5. DOLIPRANE [Concomitant]
     Active Substance: ACETAMINOPHEN
  6. NASONEX [Concomitant]
     Active Substance: MOMETASONE FUROATE
  7. MOVICOL [Concomitant]
     Active Substance: POLYETHYLENE GLYCOL 3350\POTASSIUM CHLORIDE\SODIUM BICARBONATE\SODIUM CHLORIDE

REACTIONS (5)
  - Blood triglycerides increased [Unknown]
  - Ischaemic stroke [Recovering/Resolving]
  - Prothrombin time shortened [None]
  - Atrial septal defect [Unknown]
  - Fall [None]

NARRATIVE: CASE EVENT DATE: 20150910
